FAERS Safety Report 7379077-X (Version None)
Quarter: 2011Q1

REPORT INFORMATION
  Report Type: 
  Country: None (occurrence: None)
  Receive Date: 20110328
  Receipt Date: 20110317
  Transmission Date: 20110831
  Serious: Yes (Other)
  Sender: FDA-Public Use
  Company Number: US-ASTRAZENECA-2011SE15040

PATIENT
  Age: 52 Year
  Sex: Female

DRUGS (4)
  1. ARIMIDEX [Suspect]
     Indication: BREAST CANCER
     Route: 048
     Dates: start: 20100701, end: 20101101
  2. ARIMIDEX [Suspect]
     Route: 048
     Dates: start: 20101101, end: 20110101
  3. NEURONTIN [Concomitant]
  4. ARIMIDEX [Suspect]
     Route: 048

REACTIONS (2)
  - SUPRAVENTRICULAR TACHYCARDIA [None]
  - DIVERTICULITIS [None]
